FAERS Safety Report 8430261 (Version 3)
Quarter: 2013Q1

REPORT INFORMATION
  Report Type: Spontaneous
  Country: US (occurrence: None)
  Receive Date: 20120215
  Receipt Date: 20121120
  Transmission Date: 20140127
  Serious: Yes (Other)
  Sender: FDA-Public Use
  Company Number: 1202-060

PATIENT
  Age: 86 Year
  Sex: Female

DRUGS (1)
  1. EYLEA [Suspect]
     Indication: AGE-RELATED MACULAR DEGENERATION
     Dosage: 2 MG, 1 IN 1 M, INTRAVITREAL
     Dates: start: 20120105, end: 20120105

REACTIONS (5)
  - Vitreous floaters [None]
  - Anterior chamber inflammation [None]
  - Corneal erosion [None]
  - Anterior chamber cell [None]
  - Visual acuity reduced [None]
